FAERS Safety Report 6496009 (Version 6)
Quarter: 2021Q1

REPORT INFORMATION
  Report Type: Spontaneous
  Country: GB (occurrence: GB)
  Receive Date: 20071212
  Receipt Date: 20210302
  Transmission Date: 20210420
  Serious: Yes (Death, Life-Threatening, Hospitalization, Other)
  Sender: FDA-Public Use
  Company Number: GB-PFIZER INC-2007094627

PATIENT
  Age: 33 Year
  Sex: Male

DRUGS (1)
  1. DOXORUBICIN [Suspect]
     Active Substance: DOXORUBICIN
     Indication: HEPATIC CANCER
     Dosage: UNK
     Route: 013

REACTIONS (4)
  - Encephalopathy [Fatal]
  - Hepatic failure [Fatal]
  - Acute kidney injury [Fatal]
  - Tumour lysis syndrome [Fatal]
